FAERS Safety Report 21562558 (Version 3)
Quarter: 2022Q4

REPORT INFORMATION
  Report Type: Spontaneous
  Country: JP (occurrence: JP)
  Receive Date: 20221107
  Receipt Date: 20221202
  Transmission Date: 20230113
  Serious: Yes (Hospitalization, Other)
  Sender: FDA-Public Use
  Company Number: JP-MEIJISEIKA-202205239_P_1

PATIENT
  Age: 55 Year
  Sex: Male

DRUGS (16)
  1. REMERON [Interacting]
     Active Substance: MIRTAZAPINE
     Dosage: 15 MILLIGRAM,
     Route: 048
     Dates: start: 201401
  2. PRAMIPEXOLE [Interacting]
     Active Substance: PRAMIPEXOLE
     Indication: Parkinson^s disease
     Dosage: 0.125 MILLIGRAM
     Route: 048
     Dates: start: 202105
  3. PRAMIPEXOLE [Interacting]
     Active Substance: PRAMIPEXOLE
     Dosage: 0.25 MILLIGRAM
     Route: 048
     Dates: start: 2021
  4. PRAMIPEXOLE [Interacting]
     Active Substance: PRAMIPEXOLE
     Dosage: 0.75 MILLIGRAM
     Route: 048
     Dates: start: 202106
  5. TRAZODONE HYDROCHLORIDE [Interacting]
     Active Substance: TRAZODONE HYDROCHLORIDE
     Indication: Abulia
     Dosage: UNK
     Route: 065
     Dates: start: 2020
  6. TRAZODONE HYDROCHLORIDE [Interacting]
     Active Substance: TRAZODONE HYDROCHLORIDE
     Indication: Insomnia
  7. ALPRAZOLAM [Concomitant]
     Active Substance: ALPRAZOLAM
     Indication: Depression
     Dosage: UNK
     Route: 065
     Dates: start: 201403
  8. ZOLPIDEM TARTRATE [Concomitant]
     Active Substance: ZOLPIDEM TARTRATE
     Indication: Depression
     Dosage: UNK
     Dates: start: 201403
  9. CARBIDOPA\LEVODOPA [Concomitant]
     Active Substance: CARBIDOPA\LEVODOPA
     Indication: Parkinson^s disease
     Dosage: 350 MILLIGRAM/DAY
     Route: 065
     Dates: start: 2019
  10. CARBIDOPA\LEVODOPA [Concomitant]
     Active Substance: CARBIDOPA\LEVODOPA
     Dosage: 450 MILLIGRAM/DAY
     Route: 065
     Dates: start: 2020
  11. ENTACAPONE [Concomitant]
     Active Substance: ENTACAPONE
     Indication: Parkinson^s disease
     Dosage: UNK
     Route: 065
     Dates: start: 2019
  12. CABERGOLINE [Concomitant]
     Active Substance: CABERGOLINE
     Indication: Parkinson^s disease
     Dosage: UNK
     Route: 065
     Dates: start: 2020
  13. FLUNITRAZEPAM [Concomitant]
     Active Substance: FLUNITRAZEPAM
     Indication: Abulia
     Dosage: UNK
     Route: 065
     Dates: start: 2020
  14. FLUNITRAZEPAM [Concomitant]
     Active Substance: FLUNITRAZEPAM
     Indication: Insomnia
  15. ISTRADEFYLLINE [Concomitant]
     Active Substance: ISTRADEFYLLINE
     Indication: Abulia
     Dosage: UNK
     Route: 065
     Dates: start: 202103
  16. ISTRADEFYLLINE [Concomitant]
     Active Substance: ISTRADEFYLLINE
     Indication: Insomnia

REACTIONS (4)
  - Serotonin syndrome [Recovering/Resolving]
  - Inappropriate antidiuretic hormone secretion [Recovering/Resolving]
  - Drug interaction [Recovering/Resolving]
  - Drug interaction [Recovering/Resolving]
